FAERS Safety Report 8780387 (Version 1)
Quarter: 2012Q4

REPORT INFORMATION
  Report Type: Spontaneous
  Country: NO (occurrence: None)
  Receive Date: 20120828
  Receipt Date: 20120828
  Transmission Date: 20130627
  Serious: Yes (Death)
  Sender: FDA-Public Use
  Company Number: FK201202334

PATIENT
  Age: 70 Year
  Sex: Female

DRUGS (1)
  1. PACLITAXEL [Suspect]
     Dates: start: 20120627

REACTIONS (4)
  - Anaphylactic shock [None]
  - Bronchospasm [None]
  - Cyanosis [None]
  - Loss of consciousness [None]
